FAERS Safety Report 7712805-X (Version None)
Quarter: 2011Q3

REPORT INFORMATION
  Report Type: 
  Country: None (occurrence: None)
  Receive Date: 20110826
  Receipt Date: 20110819
  Transmission Date: 20111222
  Serious: Yes (Hospitalization)
  Sender: FDA-Public Use
  Company Number: FR-GLAXOSMITHKLINE-B0740923A

PATIENT
  Sex: Female

DRUGS (6)
  1. ZOVIRAX [Suspect]
     Indication: EPSTEIN-BARR VIRAEMIA
     Dosage: 600MG THREE TIMES PER DAY
     Route: 042
     Dates: start: 20110727, end: 20110729
  2. NEXIUM [Concomitant]
     Route: 048
  3. PLAQUENIL [Concomitant]
     Dosage: 200MG UNKNOWN
     Route: 048
  4. CALCIUM CARBONATE [Concomitant]
     Route: 048
  5. PREDNISOLONE [Concomitant]
     Route: 048
  6. DEDROGYL [Concomitant]
     Route: 048

REACTIONS (1)
  - RENAL FAILURE ACUTE [None]
